FAERS Safety Report 9033393 (Version 1)
Quarter: 2013Q1

REPORT INFORMATION
  Report Type: Spontaneous
  Country: US (occurrence: US)
  Receive Date: 20130128
  Receipt Date: 20130128
  Transmission Date: 20140127
  Serious: No
  Sender: FDA-Public Use
  Company Number: US-009507513-1301USA011480

PATIENT
  Age: 19 Year
  Sex: Female
  Weight: 86.17 kg

DRUGS (5)
  1. IMPLANON [Suspect]
     Indication: CONTRACEPTION
     Dosage: 1 DF, FOR 3 YEARS
     Route: 059
     Dates: start: 20111230
  2. PROMETHAZINE [Concomitant]
  3. LAMOTRIGINE [Concomitant]
  4. PHENOBARBITAL [Concomitant]
  5. DICLOFENAC SODIUM [Concomitant]

REACTIONS (4)
  - Hypersensitivity [Unknown]
  - Swelling face [Unknown]
  - Local swelling [Unknown]
  - Local swelling [Unknown]
